FAERS Safety Report 7956999-X (Version None)
Quarter: 2011Q4

REPORT INFORMATION
  Report Type: 
  Country: None (occurrence: None)
  Receive Date: 20111205
  Receipt Date: 20111205
  Transmission Date: 20120403
  Serious: Yes (Other)
  Sender: FDA-Public Use
  Company Number: None

PATIENT
  Age: 63 Year
  Sex: Female
  Weight: 76.657 kg

DRUGS (2)
  1. VENLAFAXINE HCL EXTENDED-RELEASE [Suspect]
     Indication: DEPRESSION
     Dosage: 1X
     Route: 048
     Dates: start: 20110601, end: 20111203
  2. VENLAFAXINE HCL EXTENDED-RELEASE [Suspect]
     Indication: PAIN
     Dosage: 1X
     Route: 048
     Dates: start: 20110601, end: 20111203

REACTIONS (7)
  - WEIGHT INCREASED [None]
  - ANGER [None]
  - HOSTILITY [None]
  - IRRITABILITY [None]
  - WITHDRAWAL SYNDROME [None]
  - ABNORMAL DREAMS [None]
  - PRODUCT SUBSTITUTION ISSUE [None]
